APPROVED DRUG PRODUCT: CIPROFLOXACIN HYDROCHLORIDE
Active Ingredient: CIPROFLOXACIN HYDROCHLORIDE
Strength: EQ 250MG BASE
Dosage Form/Route: TABLET;ORAL
Application: A076558 | Product #002 | TE Code: AB
Applicant: HIKMA PHARMACEUTICALS
Approved: Jun 9, 2004 | RLD: No | RS: No | Type: RX